FAERS Safety Report 17971513 (Version 4)
Quarter: 2021Q1

REPORT INFORMATION
  Report Type: Report from Study
  Country: US (occurrence: US)
  Receive Date: 20200701
  Receipt Date: 20210211
  Transmission Date: 20210419
  Serious: No
  Sender: FDA-Public Use
  Company Number: NVSC2020US185453

PATIENT
  Sex: Male

DRUGS (2)
  1. ENTRESTO [Suspect]
     Active Substance: SACUBITRIL\VALSARTAN
     Indication: CARDIAC FAILURE CONGESTIVE
     Dosage: 1 DF (97/10MG), BID
     Route: 048
     Dates: start: 20200525
  2. ENTRESTO [Suspect]
     Active Substance: SACUBITRIL\VALSARTAN
     Indication: CARDIAC FAILURE
     Dosage: UNK UNK, UNKNOWN
     Route: 048
     Dates: start: 202005

REACTIONS (8)
  - Fluid retention [Recovered/Resolved]
  - Product dose omission issue [Unknown]
  - Energy increased [Recovering/Resolving]
  - Incorrect dosage administered [Unknown]
  - Dyspnoea [Unknown]
  - Fluid retention [Unknown]
  - Psychomotor hyperactivity [Recovering/Resolving]
  - Weight increased [Unknown]
